FAERS Safety Report 23341406 (Version 1)
Quarter: 2023Q4

REPORT INFORMATION
  Report Type: Spontaneous
  Country: US (occurrence: US)
  Receive Date: 20231227
  Receipt Date: 20231227
  Transmission Date: 20240109
  Serious: Yes (Hospitalization, Other)
  Sender: FDA-Public Use
  Company Number: US-AZURITY PHARMACEUTICALS, INC.-US-2023ARB005043

PATIENT
  Sex: Female

DRUGS (4)
  1. AMLODIPINE [Suspect]
     Active Substance: AMLODIPINE BESYLATE
     Indication: Blood pressure management
     Dosage: 5 MG, QD
  2. AMLODIPINE [Suspect]
     Active Substance: AMLODIPINE BESYLATE
     Dosage: 10 MG, QD
  3. LABETALOL HYDROCHLORIDE [Suspect]
     Active Substance: LABETALOL HYDROCHLORIDE
     Indication: Blood pressure management
     Dosage: 300 MG, BID
  4. LOSARTAN [Suspect]
     Active Substance: LOSARTAN
     Indication: Blood pressure management
     Dosage: 100 MG, QD

REACTIONS (3)
  - Adrenal adenoma [Recovered/Resolved]
  - Hyperaldosteronism [Recovered/Resolved]
  - Oedema peripheral [Unknown]
